FAERS Safety Report 7388283-X (Version None)
Quarter: 2011Q2

REPORT INFORMATION
  Report Type: 
  Country: None (occurrence: None)
  Receive Date: 20110401
  Receipt Date: 20110317
  Transmission Date: 20111010
  Serious: Yes (Other)
  Sender: FDA-Public Use
  Company Number: US-BAYER-201029627NA

PATIENT
  Sex: Female
  Weight: 81.633 kg

DRUGS (7)
  1. CYMBALTA [Concomitant]
     Indication: ANTIDEPRESSANT THERAPY
     Dosage: UNK
     Dates: start: 20070101, end: 20081101
  2. YAZ [Suspect]
     Indication: CONTRACEPTION
     Dosage: UNK
     Route: 048
     Dates: start: 20071001, end: 20081101
  3. MOTRIN [Concomitant]
     Dosage: UNK
     Dates: start: 20090101
  4. CEPHALEXIN [Concomitant]
     Dosage: 500 MG, UNK
  5. VITAMIN C IWAKI [ASCORBIC ACID] [Concomitant]
  6. ALEVE-D SINUS + COLD [Concomitant]
     Dosage: UNK
     Dates: start: 20090101
  7. CITALOPRAM HYDROBROMIDE [Concomitant]
     Dosage: 20 MG, UNK

REACTIONS (3)
  - PAIN [None]
  - DEPRESSION [None]
  - GALLBLADDER DISORDER [None]
